FAERS Safety Report 19771112 (Version 2)
Quarter: 2021Q3

REPORT INFORMATION
  Report Type: Spontaneous
  Country: TR (occurrence: TR)
  Receive Date: 20210831
  Receipt Date: 20210831
  Transmission Date: 20211014
  Serious: No
  Sender: FDA-Public Use
  Company Number: TR-LUPIN PHARMACEUTICALS INC.-2021-16109

PATIENT
  Age: 64 Year
  Sex: Male

DRUGS (5)
  1. FAVIPIRAVIR [Interacting]
     Active Substance: FAVIPIRAVIR
     Dosage: 600 MILLIGRAM, QD
     Route: 065
  2. FAVIPIRAVIR [Interacting]
     Active Substance: FAVIPIRAVIR
     Indication: COVID-19
     Dosage: 1600 MILLIGRAM,1600 MILLIGRAM ON DAY 1
     Route: 065
  3. HYDROXYCHLOROQUINE [Suspect]
     Active Substance: HYDROXYCHLOROQUINE
     Indication: COVID-19
     Dosage: UNK
     Route: 065
  4. MEROPENEM. [Suspect]
     Active Substance: MEROPENEM
     Indication: COVID-19
     Dosage: 3 GRAM, QD
     Route: 065
  5. LITHIUM. [Interacting]
     Active Substance: LITHIUM
     Indication: BIPOLAR DISORDER
     Dosage: 600 MILLIGRAM, QD
     Route: 065

REACTIONS (2)
  - Off label use [Unknown]
  - Drug interaction [Unknown]
